FAERS Safety Report 12784218 (Version 5)
Quarter: 2020Q4

REPORT INFORMATION
  Report Type: Spontaneous
  Country: US (occurrence: US)
  Receive Date: 20160927
  Receipt Date: 20201030
  Transmission Date: 20210113
  Serious: Yes (Life-Threatening, Hospitalization, Other)
  Sender: FDA-Public Use
  Company Number: US-BIOGEN-2016BI00295123

PATIENT
  Age: 57 Year
  Sex: Male
  Weight: 119.4 kg

DRUGS (4)
  1. TYSABRI [Suspect]
     Active Substance: NATALIZUMAB
     Indication: MULTIPLE SCLEROSIS
     Route: 042
     Dates: start: 20160414, end: 20160818
  2. TYSABRI [Suspect]
     Active Substance: NATALIZUMAB
     Route: 065
     Dates: start: 20160414, end: 20161107
  3. TYSABRI [Suspect]
     Active Substance: NATALIZUMAB
     Route: 065
     Dates: start: 20170310, end: 20171008
  4. TYSABRI [Suspect]
     Active Substance: NATALIZUMAB
     Route: 065
     Dates: start: 20170310, end: 20191008

REACTIONS (15)
  - Increased upper airway secretion [Unknown]
  - Chronic obstructive pulmonary disease [Unknown]
  - Blood pressure increased [Unknown]
  - Depression [Unknown]
  - Middle insomnia [Unknown]
  - Cognitive disorder [Unknown]
  - Multiple sclerosis [Unknown]
  - Weight increased [Unknown]
  - Coronary artery occlusion [Unknown]
  - Product dose omission issue [Unknown]
  - Weight decreased [Unknown]
  - Myocardial infarction [Recovered/Resolved]
  - Angina unstable [Unknown]
  - Catatonia [Unknown]
  - Dyspnoea [Unknown]

NARRATIVE: CASE EVENT DATE: 201908
